FAERS Safety Report 5441192-5 (Version None)
Quarter: 2007Q3

REPORT INFORMATION
  Report Type: 
  Country: None (occurrence: None)
  Receive Date: 20070901
  Receipt Date: 20070821
  Transmission Date: 20080115
  Serious: Yes (Other)
  Sender: FDA-Public Use
  Company Number: FR-PFIZER INC-2007069970

PATIENT
  Age: 43 Year
  Sex: Female

DRUGS (2)
  1. PREGABALIN [Suspect]
     Indication: FACIAL PAIN
     Dosage: DAILY DOSE:300MG
  2. CARBAMAZEPINE [Suspect]
     Indication: FACIAL PAIN
     Dosage: DAILY DOSE:400MG

REACTIONS (5)
  - ABNORMAL BEHAVIOUR [None]
  - ANTEROGRADE AMNESIA [None]
  - CONFUSIONAL STATE [None]
  - DRUG INEFFECTIVE [None]
  - PETIT MAL EPILEPSY [None]
